FAERS Safety Report 8031548-9 (Version None)
Quarter: 2012Q1

REPORT INFORMATION
  Report Type: 
  Country: None (occurrence: None)
  Receive Date: 20120109
  Receipt Date: 20120103
  Transmission Date: 20120608
  Serious: Yes (Other)
  Sender: FDA-Public Use
  Company Number: US-US-EMD SERONO, INC.-7102270

PATIENT
  Sex: Male

DRUGS (3)
  1. BACLOFEN [Concomitant]
  2. REBIF [Suspect]
     Indication: PRODUCT USED FOR UNKNOWN INDICATION
     Route: 058
     Dates: start: 20081117
  3. GABAPENTIN [Concomitant]

REACTIONS (6)
  - MIGRAINE [None]
  - CHILLS [None]
  - SENSATION OF HEAVINESS [None]
  - MUSCLE SPASMS [None]
  - DIZZINESS [None]
  - BASAL CELL CARCINOMA [None]
